FAERS Safety Report 7631018-3 (Version None)
Quarter: 2011Q3

REPORT INFORMATION
  Report Type: 
  Country: None (occurrence: None)
  Receive Date: 20110725
  Receipt Date: 20110714
  Transmission Date: 20111222
  Serious: No
  Sender: FDA-Public Use
  Company Number: US-BIOGENIDEC-2011BI026333

PATIENT
  Sex: Female

DRUGS (2)
  1. AVONEX [Suspect]
     Indication: MULTIPLE SCLEROSIS
     Route: 030
     Dates: start: 20090115, end: 20100418
  2. AVONEX [Suspect]
     Route: 030
     Dates: start: 19981001, end: 20080302

REACTIONS (1)
  - ADVERSE DRUG REACTION [None]
